FAERS Safety Report 23669237 (Version 5)
Quarter: 2025Q2

REPORT INFORMATION
  Report Type: Spontaneous
  Country: US (occurrence: US)
  Receive Date: 20240325
  Receipt Date: 20250506
  Transmission Date: 20250717
  Serious: No
  Sender: PFIZER
  Company Number: US-PFIZER INC-PV202400038837

PATIENT
  Age: 79 Year
  Sex: Male

DRUGS (3)
  1. VYNDAMAX [Suspect]
     Active Substance: TAFAMIDIS
     Indication: Acquired ATTR amyloidosis
     Dosage: 61 MG, 1X/DAY
     Route: 048
  2. LIPITOR [Concomitant]
     Active Substance: ATORVASTATIN CALCIUM
     Route: 048
  3. TREXALL [Concomitant]
     Active Substance: METHOTREXATE SODIUM
     Dosage: TAKE 10 TABLETS (25 MG TOTAL) BY MOUTH ONCE A WEEK
     Route: 048

REACTIONS (1)
  - Malaise [Unknown]
